FAERS Safety Report 7786587-X (Version None)
Quarter: 2011Q3

REPORT INFORMATION
  Report Type: 
  Country: None (occurrence: None)
  Receive Date: 20110929
  Receipt Date: 20110920
  Transmission Date: 20111222
  Serious: Yes (Other)
  Sender: FDA-Public Use
  Company Number: CA-ELI_LILLY_AND_COMPANY-CA201109005426

PATIENT
  Sex: Male

DRUGS (2)
  1. ZYPREXA [Suspect]
     Indication: MAJOR DEPRESSION
     Dosage: 5 MG, QD
     Dates: start: 20030218, end: 20100501
  2. PAXIL [Concomitant]

REACTIONS (5)
  - OFF LABEL USE [None]
  - BLINDNESS [None]
  - MUSCLE TWITCHING [None]
  - DIABETES MELLITUS [None]
  - WEIGHT INCREASED [None]
